FAERS Safety Report 7069216-2 (Version None)
Quarter: 2010Q4

REPORT INFORMATION
  Report Type: 
  Country: None (occurrence: None)
  Receive Date: 20101028
  Receipt Date: 20101019
  Transmission Date: 20110411
  Serious: Yes (Hospitalization)
  Sender: FDA-Public Use
  Company Number: B0681472A

PATIENT
  Age: 24 Year
  Sex: Female
  Weight: 48 kg

DRUGS (1)
  1. CEFUROXIME [Suspect]
     Indication: CYSTITIS
     Dosage: 250MG PER DAY
     Route: 048
     Dates: start: 20101014, end: 20101016

REACTIONS (3)
  - DYSPNOEA [None]
  - NAUSEA [None]
  - THROAT IRRITATION [None]
